FAERS Safety Report 10177808 (Version 1)
Quarter: 2014Q2

REPORT INFORMATION
  Report Type: Spontaneous
  Country: US (occurrence: US)
  Receive Date: 20140516
  Receipt Date: 20140516
  Transmission Date: 20141212
  Serious: No
  Sender: FDA-Public Use
  Company Number: US-SA-2013SA100359

PATIENT
  Age: 61 Year
  Sex: Female

DRUGS (2)
  1. APIDRA SOLOSTAR [Suspect]
     Indication: TYPE 2 DIABETES MELLITUS
     Dosage: DOSE: SLIDING SCALE?FREQUENCY:WITH MEALS?TAKEN FROM: 1 YEAR AGO
     Route: 065
  2. SOLOSTAR [Concomitant]

REACTIONS (2)
  - Injection site erythema [Unknown]
  - Incorrect dose administered [Unknown]
